FAERS Safety Report 24191698 (Version 1)
Quarter: 2024Q3

REPORT INFORMATION
  Report Type: Report from Study
  Country: CZ (occurrence: CZ)
  Receive Date: 20240808
  Receipt Date: 20240808
  Transmission Date: 20241017
  Serious: Yes (Death)
  Sender: ABBVIE
  Company Number: CZ-ABBVIE-5872516

PATIENT
  Sex: Male

DRUGS (5)
  1. CARBIDOPA\LEVODOPA [Suspect]
     Active Substance: CARBIDOPA\LEVODOPA
     Indication: Parkinson^s disease
     Dosage: MORNING DOSE 7.3 ML, CONTINUOUS DOSE 3.9 ML/HOUR, EXTRA DOSE 1 ML
     Route: 050
     Dates: start: 20210811
  2. CARBIDOPA\LEVODOPA [Suspect]
     Active Substance: CARBIDOPA\LEVODOPA
  3. CARBIDOPA\LEVODOPA [Concomitant]
     Active Substance: CARBIDOPA\LEVODOPA
     Indication: Parkinson^s disease
     Dosage: FORM STRENGTH: 250 MILLIGRAM
     Route: 048
     Dates: start: 20110707
  4. QUETIAPINE [Concomitant]
     Active Substance: QUETIAPINE
     Dosage: FREQUENCY 2-2-0-0  FORM STRENGTH: 25 MG,
     Route: 048
     Dates: start: 20101103
  5. QUETIAPINE [Concomitant]
     Active Substance: QUETIAPINE
     Dosage: FREQUENCY 0-0-1-2  FORM STRENGTH: 100 MG,
     Route: 048
     Dates: start: 20111024

REACTIONS (1)
  - Death [Fatal]
